FAERS Safety Report 15862674 (Version 3)
Quarter: 2019Q2

REPORT INFORMATION
  Report Type: Report from Study
  Country: US (occurrence: US)
  Receive Date: 20190124
  Receipt Date: 20190503
  Transmission Date: 20190711
  Serious: Yes (Other)
  Sender: FDA-Public Use
  Company Number: US-PFIZER INC-2019019871

PATIENT
  Age: 67 Year
  Sex: Male

DRUGS (3)
  1. SUNITINIB MALATE. [Suspect]
     Active Substance: SUNITINIB MALATE
     Dosage: 25 MG (REDUCED DOSE, DUE TO DIARRHEA), 1X/DAY
     Route: 048
     Dates: start: 20171123, end: 20171225
  2. ATENOLOL. [Concomitant]
     Active Substance: ATENOLOL
     Indication: HYPERTENSION
     Dosage: 25 MG, DAILY
     Route: 048
     Dates: start: 20170424
  3. SUNITINIB MALATE. [Suspect]
     Active Substance: SUNITINIB MALATE
     Indication: INSULINOMA
     Dosage: 25 MG (REDUCED DOSE, DUE TO DIARRHEA), 1X/DAY
     Route: 048
     Dates: start: 20170808, end: 20171101

REACTIONS (1)
  - Hypertriglyceridaemia [Not Recovered/Not Resolved]

NARRATIVE: CASE EVENT DATE: 201712
